FAERS Safety Report 9636272 (Version 2)
Quarter: 2013Q4

REPORT INFORMATION
  Report Type: Spontaneous
  Country: AT (occurrence: AT)
  Receive Date: 20131021
  Receipt Date: 20131021
  Transmission Date: 20140711
  Serious: Yes (Other)
  Sender: FDA-Public Use
  Company Number: AT-ASTRAZENECA-2012SE87258

PATIENT
  Sex: Male
  Weight: 75 kg

DRUGS (7)
  1. ESOMEPRAZOLE [Suspect]
     Route: 048
  2. IRESSA [Suspect]
     Route: 048
  3. THROMBOASS [Suspect]
  4. XGEVA [Suspect]
  5. TRAMAL [Suspect]
  6. SELEN [Suspect]
  7. ZINK [Suspect]

REACTIONS (1)
  - Monoplegia [Unknown]
